FAERS Safety Report 23443324 (Version 2)
Quarter: 2024Q1

REPORT INFORMATION
  Report Type: Spontaneous
  Country: US (occurrence: US)
  Receive Date: 20240125
  Receipt Date: 20240131
  Transmission Date: 20240410
  Serious: Yes (Hospitalization)
  Sender: FDA-Public Use
  Company Number: US-PFIZER INC-202400022226

PATIENT
  Age: 74 Year
  Sex: Male

DRUGS (5)
  1. LORAZEPAM [Suspect]
     Active Substance: LORAZEPAM
     Indication: Catatonia
     Dosage: 2 MG
     Route: 042
  2. LORAZEPAM [Suspect]
     Active Substance: LORAZEPAM
     Dosage: 1 MG, 3 TIMES DAILY
     Route: 042
  3. LORAZEPAM [Suspect]
     Active Substance: LORAZEPAM
     Dosage: 9 MG
     Route: 042
  4. LORAZEPAM [Suspect]
     Active Substance: LORAZEPAM
     Dosage: REDUCTION OF LORAZEPAM
     Route: 042
  5. LORAZEPAM [Suspect]
     Active Substance: LORAZEPAM
     Dosage: TOTAL 3 MG, DAILY
     Route: 042

REACTIONS (4)
  - Delirium [Recovered/Resolved]
  - Condition aggravated [Recovered/Resolved]
  - Off label use [Unknown]
  - Drug effective for unapproved indication [Unknown]
